FAERS Safety Report 5076026-4 (Version None)
Quarter: 2006Q3

REPORT INFORMATION
  Report Type: 
  Country: None (occurrence: None)
  Receive Date: 20060808
  Receipt Date: 20060808
  Transmission Date: 20061208
  Serious: Yes (Hospitalization)
  Sender: FDA-Public Use
  Company Number: None

PATIENT
  Age: 65 Year
  Sex: Female
  Weight: 59.4212 kg

DRUGS (10)
  1. ERBITUX [Suspect]
     Indication: COLON CANCER
     Dosage: 680 MG IV (LOADING DOSE) , 425 MG IV
     Route: 042
     Dates: start: 20060727
  2. ERBITUX [Suspect]
     Indication: COLON CANCER
     Dosage: 680 MG IV (LOADING DOSE) , 425 MG IV
     Route: 042
     Dates: start: 20060803
  3. CELEBREX [Suspect]
     Dosage: 200 MG BID
     Dates: start: 20060727
  4. NEURONTIN [Concomitant]
  5. LORTAB [Concomitant]
  6. PREVACID [Concomitant]
  7. HYDROCHLOROTHIAZIDE [Concomitant]
  8. VIT B [Concomitant]
  9. ENALAPRIL MALEATE [Concomitant]
  10. POTASSIUM CHLORIDE [Concomitant]

REACTIONS (6)
  - ABDOMINAL PAIN [None]
  - COLON CANCER METASTATIC [None]
  - HAEMATURIA [None]
  - HYDRONEPHROSIS [None]
  - MALIGNANT NEOPLASM PROGRESSION [None]
  - PELVIC MASS [None]
